FAERS Safety Report 4829811-5 (Version None)
Quarter: 2005Q4

REPORT INFORMATION
  Report Type: 
  Country: None (occurrence: None)
  Receive Date: 20051115
  Receipt Date: 20051115
  Transmission Date: 20060501
  Serious: No
  Sender: FDA-Public Use
  Company Number: None

PATIENT
  Sex: Male
  Weight: 62.5964 kg

DRUGS (4)
  1. HYDROCHLOROTHIAZIDE [Suspect]
     Indication: HYPERTENSION
     Dosage: 12.5 MG -1/2 TABLET - ONCE DAILY PO
     Route: 048
     Dates: start: 20050412, end: 20050521
  2. LOVASTATIN [Concomitant]
  3. FOSINOPRIL [Concomitant]
  4. SALSALATE [Concomitant]

REACTIONS (1)
  - FLUID RETENTION [None]
